FAERS Safety Report 12626822 (Version 1)
Quarter: 2016Q3

REPORT INFORMATION
  Report Type: Spontaneous
  Country: PL (occurrence: PL)
  Receive Date: 20160805
  Receipt Date: 20160805
  Transmission Date: 20161109
  Serious: Yes (Hospitalization, Other)
  Sender: FDA-Public Use
  Company Number: PL-MYLANLABS-2016M1031408

PATIENT

DRUGS (1)
  1. ZOLPIDEM [Suspect]
     Active Substance: ZOLPIDEM\ZOLPIDEM TARTRATE
     Indication: SLEEP DISORDER
     Dosage: UNK
     Route: 048

REACTIONS (9)
  - Speech disorder [Unknown]
  - Panic attack [Unknown]
  - Agitation [Unknown]
  - Coprolalia [Unknown]
  - Dyskinesia [Unknown]
  - Psychotic disorder [Unknown]
  - Abnormal behaviour [Unknown]
  - Hallucinations, mixed [Unknown]
  - Delusion [Unknown]
